FAERS Safety Report 16259676 (Version 1)
Quarter: 2019Q2

REPORT INFORMATION
  Report Type: Spontaneous
  Country: US (occurrence: US)
  Receive Date: 20190326
  Receipt Date: 20190326
  Transmission Date: 20190711
  Serious: No
  Sender: FDA-Public Use
  Company Number: None

PATIENT
  Age: 67 Year
  Sex: Male
  Weight: 84 kg

DRUGS (1)
  1. PREDNISONE. [Suspect]
     Active Substance: PREDNISONE
     Indication: RASH
     Route: 048
     Dates: start: 20190219, end: 20190222

REACTIONS (9)
  - Myalgia [None]
  - Pruritus [None]
  - Sleep disorder [None]
  - Drug ineffective [None]
  - Rash [None]
  - Lip dry [None]
  - Facial pain [None]
  - Urticaria [None]
  - Lip swelling [None]

NARRATIVE: CASE EVENT DATE: 20190224
